FAERS Safety Report 4822454-9 (Version None)
Quarter: 2005Q4

REPORT INFORMATION
  Report Type: 
  Country: None (occurrence: None)
  Receive Date: 20051103
  Receipt Date: 20051103
  Transmission Date: 20060501
  Serious: Yes (Life-Threatening)
  Sender: FDA-Public Use
  Company Number: None

PATIENT
  Sex: Female

DRUGS (2)
  1. CYTARABINE [Suspect]
     Indication: ACUTE PROMYELOCYTIC LEUKAEMIA
     Dosage: 1300 MG DAY 1-3 IV
     Route: 042
  2. DAUNORUBICIN [Suspect]
     Indication: ACUTE PROMYELOCYTIC LEUKAEMIA
     Dosage: 60MG DAY 1-3 IV
     Route: 042

REACTIONS (12)
  - ATRIAL FIBRILLATION [None]
  - BLOOD CATECHOLAMINES ABNORMAL [None]
  - CONDITION AGGRAVATED [None]
  - DEEP VEIN THROMBOSIS [None]
  - DIABETES MELLITUS [None]
  - DIFFICULTY IN WALKING [None]
  - HAEMOGLOBIN DECREASED [None]
  - HYPOTENSION [None]
  - PAIN IN EXTREMITY [None]
  - RETINOIC ACID SYNDROME [None]
  - THROMBOSIS [None]
  - WHITE BLOOD CELL COUNT DECREASED [None]
